FAERS Safety Report 16019302 (Version 1)
Quarter: 2019Q1

REPORT INFORMATION
  Report Type: Report from Study
  Country: US (occurrence: US)
  Receive Date: 20190228
  Receipt Date: 20190228
  Transmission Date: 20190418
  Serious: Yes (Hospitalization)
  Sender: FDA-Public Use
  Company Number: PHHO2019US000933

PATIENT
  Age: 21 Year
  Sex: Male
  Weight: 84.5 kg

DRUGS (16)
  1. METHOTREXATE. [Suspect]
     Active Substance: METHOTREXATE
     Dosage: 15 MG, ONCE/SINGLE
     Route: 037
     Dates: start: 20190111, end: 20190111
  2. MERCAPTOPURINE. [Concomitant]
     Active Substance: MERCAPTOPURINE
     Indication: ACUTE LYMPHOCYTIC LEUKAEMIA
     Dosage: 1050 MG, UNK
     Route: 048
     Dates: start: 20181214, end: 20190103
  3. METHOTREXATE. [Suspect]
     Active Substance: METHOTREXATE
     Dosage: 9750 MG, ONCE/SINGLE
     Route: 042
     Dates: start: 20181214, end: 20181214
  4. VINCRISTINE [Concomitant]
     Active Substance: VINCRISTINE
     Dosage: 2 MG, ONCE/SINGLE
     Route: 042
     Dates: start: 20190111, end: 20190111
  5. VINCRISTINE [Concomitant]
     Active Substance: VINCRISTINE
     Dosage: 2 MG, ONCE/SINGLE
     Route: 042
     Dates: start: 20190125
  6. MERCAPTOPURINE. [Concomitant]
     Active Substance: MERCAPTOPURINE
     Dosage: 50 MG, UNK
     Route: 048
     Dates: start: 20190111
  7. INC424A [Suspect]
     Active Substance: RUXOLITINIB
     Indication: ACUTE LYMPHOCYTIC LEUKAEMIA
     Dosage: 95 MG, BID
     Route: 048
     Dates: start: 20181214
  8. LEUCOVORIN. [Concomitant]
     Active Substance: LEUCOVORIN
     Dosage: 2000 MG, Q6H
     Route: 048
     Dates: start: 20190118
  9. LEUCOVORIN. [Concomitant]
     Active Substance: LEUCOVORIN
     Indication: ACUTE LYMPHOCYTIC LEUKAEMIA
     Dosage: 30 MG, Q6H
     Route: 042
     Dates: start: 20181216, end: 20181218
  10. VINCRISTINE [Concomitant]
     Active Substance: VINCRISTINE
     Dosage: 2 MG, ONCE/SINGLE
     Route: 042
     Dates: start: 20181228, end: 20181228
  11. LEUCOVORIN. [Concomitant]
     Active Substance: LEUCOVORIN
     Dosage: 30 MG, Q6H
     Route: 048
     Dates: start: 20181230
  12. METHOTREXATE. [Suspect]
     Active Substance: METHOTREXATE
     Dosage: 9850 MG, ONCE/SINGLE
     Route: 042
     Dates: start: 20190111
  13. VINCRISTINE [Concomitant]
     Active Substance: VINCRISTINE
     Indication: ACUTE LYMPHOCYTIC LEUKAEMIA
     Dosage: 2 MG, SINGLE
     Route: 042
     Dates: start: 20181214, end: 20181214
  14. METHOTREXATE. [Suspect]
     Active Substance: METHOTREXATE
     Indication: ACUTE LYMPHOCYTIC LEUKAEMIA
     Dosage: 15 MG, ONCE/SINGLE
     Route: 037
     Dates: start: 20181214, end: 20181214
  15. METHOTREXATE. [Suspect]
     Active Substance: METHOTREXATE
     Dosage: 9800 MG, ONCE/SINGLE
     Route: 042
     Dates: start: 20181228, end: 20181228
  16. LEUCOVORIN. [Concomitant]
     Active Substance: LEUCOVORIN
     Dosage: 150 MG, Q4H
     Route: 048
     Dates: start: 20190113, end: 20190118

REACTIONS (3)
  - Blood creatinine increased [Recovered/Resolved]
  - Headache [Recovered/Resolved]
  - Headache [Recovered/Resolved]

NARRATIVE: CASE EVENT DATE: 20190102
